FAERS Safety Report 8366820-6 (Version None)
Quarter: 2012Q2

REPORT INFORMATION
  Report Type: 
  Country: None (occurrence: None)
  Receive Date: 20120517
  Receipt Date: 20120510
  Transmission Date: 20120825
  Serious: Yes (Other)
  Sender: FDA-Public Use
  Company Number: AT-ROCHE-1013758

PATIENT
  Sex: Female

DRUGS (10)
  1. MABTHERA [Suspect]
     Dates: end: 20101012
  2. MABTHERA [Suspect]
     Indication: RHEUMATOID ARTHRITIS
     Route: 065
     Dates: start: 20070730
  3. MABTHERA [Suspect]
     Dates: start: 20080402
  4. MABTHERA [Suspect]
     Dates: start: 20081104
  5. MABCAMPATH [Suspect]
     Dates: start: 20091111
  6. MABTHERA [Suspect]
     Dates: start: 20070813
  7. MABTHERA [Suspect]
     Dates: start: 20080303
  8. MABTHERA [Suspect]
     Dates: start: 20100928
  9. MABTHERA [Suspect]
     Dates: start: 20081118
  10. MABTHERA [Suspect]
     Dates: start: 20091028

REACTIONS (1)
  - BREAST CANCER [None]
